FAERS Safety Report 15440856 (Version 3)
Quarter: 2018Q4

REPORT INFORMATION
  Report Type: Spontaneous
  Country: BR (occurrence: BR)
  Receive Date: 20180928
  Receipt Date: 20181024
  Transmission Date: 20190204
  Serious: Yes (Other)
  Sender: FDA-Public Use
  Company Number: BR-PFIZER INC-2018384674

PATIENT
  Age: 81 Year
  Sex: Female

DRUGS (3)
  1. LORAX [Suspect]
     Active Substance: LORAZEPAM
     Dosage: UNK
     Dates: start: 1983
  2. LORAX [Suspect]
     Active Substance: LORAZEPAM
     Dosage: 4 MG, DAILY
  3. LORAX [Suspect]
     Active Substance: LORAZEPAM
     Dosage: 3 MG, DAILY (2MG, ONE TABLET AND HALF)

REACTIONS (12)
  - Diabetes mellitus [Unknown]
  - Product use issue [Unknown]
  - Fatigue [Unknown]
  - Crying [Recovered/Resolved]
  - Drug dependence [Not Recovered/Not Resolved]
  - Nervousness [Not Recovered/Not Resolved]
  - Hypertension [Unknown]
  - Deafness [Not Recovered/Not Resolved]
  - Intentional product use issue [Unknown]
  - Dysgeusia [Unknown]
  - Headache [Not Recovered/Not Resolved]
  - Emphysema [Unknown]

NARRATIVE: CASE EVENT DATE: 1983
